FAERS Safety Report 7724211-2 (Version None)
Quarter: 2011Q3

REPORT INFORMATION
  Report Type: 
  Country: None (occurrence: None)
  Receive Date: 20110901
  Receipt Date: 20110822
  Transmission Date: 20111222
  Serious: Yes (Other)
  Sender: FDA-Public Use
  Company Number: US-BAYER-201041837NA

PATIENT
  Age: 59 Year
  Sex: Female
  Weight: 68 kg

DRUGS (26)
  1. TRASYLOL [Suspect]
     Indication: MITRAL VALVE REPAIR
  2. PROTAMINE [Concomitant]
     Dosage: UNK
     Route: 042
     Dates: start: 20031205
  3. SUFENTA PRESERVATIVE FREE [Concomitant]
     Dosage: UNK
     Dates: start: 20031205
  4. LEVAQUIN [Concomitant]
  5. VERSED [Concomitant]
     Dosage: UNK
     Dates: start: 20031205
  6. TRASYLOL [Suspect]
     Indication: CARDIOPULMONARY BYPASS
     Dosage: ILLEGIBLE BOLUS DOSE FOLLOWED BY 50ML/HR INFUSION, 200ML PRIME.
     Route: 042
     Dates: start: 20031205, end: 20031205
  7. TRASYLOL [Suspect]
     Indication: AORTIC VALVE REPLACEMENT
  8. TRASYLOL [Suspect]
     Indication: CORONARY ARTERY BYPASS
  9. ACE INHIBITOR NOS [Concomitant]
  10. SPIRONOLACTONE [Concomitant]
  11. HEPARIN [Concomitant]
     Dosage: UNK
     Route: 042
     Dates: start: 20031205
  12. TOPROL-XL [Concomitant]
     Dosage: 25 MG, UNK
     Route: 048
  13. NITROGLYCERIN [Concomitant]
     Dosage: UNK
     Dates: start: 20031205
  14. FENTANYL [Concomitant]
     Dosage: UNK
     Dates: start: 20031205
  15. CAPTOPRIL [Concomitant]
     Dosage: 6.25 MG, TID
     Route: 048
  16. IMIPRAMINE [Concomitant]
  17. FORANE [Concomitant]
     Dosage: UNK
     Dates: start: 20031205
  18. VANCOMYCIN [Concomitant]
     Dosage: UNK
     Dates: start: 20031205
  19. ALBUMIN (HUMAN) [Concomitant]
     Dosage: 25 G, UNK
     Dates: start: 20031205
  20. LASIX [Concomitant]
     Dosage: 20 MG, QD
     Route: 048
  21. MAXZIDE [Concomitant]
  22. LEVOPHED [Concomitant]
     Dosage: UNK
     Dates: start: 20031205
  23. PROPOFOL [Concomitant]
     Dosage: UNK
     Dates: start: 20031205
  24. PAPAVERINE [PAPAVERINE] [Concomitant]
     Dosage: UNK
     Dates: start: 20031205
  25. DOBUTAMINE HCL [Concomitant]
     Dosage: UNK
     Dates: start: 20031205
  26. ACETYLSALICYLIC ACID SRT [Concomitant]
     Dosage: 325 MG, QD
     Route: 048

REACTIONS (9)
  - ANXIETY [None]
  - UNEVALUABLE EVENT [None]
  - RENAL IMPAIRMENT [None]
  - RENAL FAILURE [None]
  - RENAL INJURY [None]
  - EMOTIONAL DISTRESS [None]
  - FEAR [None]
  - STRESS [None]
  - PAIN [None]
